FAERS Safety Report 7565938-5 (Version None)
Quarter: 2011Q2

REPORT INFORMATION
  Report Type: 
  Country: None (occurrence: None)
  Receive Date: 20110623
  Receipt Date: 20110610
  Transmission Date: 20111010
  Serious: Yes (Hospitalization)
  Sender: FDA-Public Use
  Company Number: IT-ELI_LILLY_AND_COMPANY-IT201106004024

PATIENT

DRUGS (1)
  1. ALIMTA [Suspect]
     Indication: LUNG ADENOCARCINOMA
     Dosage: 1000 MG, UNKNOWN
     Route: 042
     Dates: start: 20110113

REACTIONS (7)
  - RASH [None]
  - DEHYDRATION [None]
  - DIARRHOEA [None]
  - DECREASED APPETITE [None]
  - THROMBOCYTOPENIA [None]
  - ANAEMIA [None]
  - FEBRILE NEUTROPENIA [None]
